FAERS Safety Report 19217115 (Version 4)
Quarter: 2021Q3

REPORT INFORMATION
  Report Type: Report from Study
  Country: CN (occurrence: CN)
  Receive Date: 20210505
  Receipt Date: 20210802
  Transmission Date: 20211014
  Serious: Yes (Hospitalization)
  Sender: FDA-Public Use
  Company Number: CN-PFIZER INC-2021442052

PATIENT
  Age: 63 Year
  Sex: Male
  Weight: 80 kg

DRUGS (7)
  1. BO BEI [Suspect]
     Active Substance: CARBOPLATIN
     Dosage: 774 MG, ONCE EVERY THREE WEEKS (Q3W), IVGTT
     Route: 041
     Dates: start: 20210303, end: 20210303
  2. ANZATAX (PACLITAXEL) [Suspect]
     Active Substance: PACLITAXEL
     Indication: SQUAMOUS CELL CARCINOMA OF LUNG
     Dosage: 330 MG, ONCE EVERY THREE WEEKS (Q3W), IVGTT
     Route: 041
     Dates: start: 20210208, end: 20210208
  3. ANZATAX (PACLITAXEL) [Suspect]
     Active Substance: PACLITAXEL
     Dosage: 336 MG, ONCE EVERY THREE WEEKS (Q3W), IVGTT
     Route: 041
     Dates: start: 20210324, end: 20210324
  4. BO BEI [Suspect]
     Active Substance: CARBOPLATIN
     Indication: SQUAMOUS CELL CARCINOMA OF LUNG
     Dosage: 731 MG, ONCE EVERY THREE WEEKS (Q3W), IVGTT
     Route: 041
     Dates: start: 20210208, end: 20210208
  5. BLINDED THERAPY [Suspect]
     Active Substance: INVESTIGATIONAL PRODUCT
     Indication: SQUAMOUS CELL CARCINOMA OF LUNG
     Dosage: UNK UNK, EVERY 3 WEEKS
     Route: 041
     Dates: start: 20210207, end: 20210207
  6. ANZATAX (PACLITAXEL) [Suspect]
     Active Substance: PACLITAXEL
     Dosage: 336 MG, ONCE EVERY THREE WEEKS (Q3W), IVGTT
     Route: 041
     Dates: start: 20210303, end: 20210303
  7. BO BEI [Suspect]
     Active Substance: CARBOPLATIN
     Dosage: 714 MG, ONCE EVERY THREE WEEKS (Q3W), IVGTT
     Route: 041
     Dates: start: 20210324, end: 20210324

REACTIONS (3)
  - Anal fistula [Recovered/Resolved]
  - Anorectal infection [Recovered/Resolved]
  - Haemorrhoids [Recovered/Resolved]

NARRATIVE: CASE EVENT DATE: 20210217
